FAERS Safety Report 8417640-5 (Version None)
Quarter: 2012Q2

REPORT INFORMATION
  Report Type: 
  Country: None (occurrence: None)
  Receive Date: 20120606
  Receipt Date: 20120529
  Transmission Date: 20120825
  Serious: Yes (Other)
  Sender: FDA-Public Use
  Company Number: US-RB-040966-12

PATIENT
  Age: 24 Year
  Sex: Female

DRUGS (2)
  1. SUBOXONE [Suspect]
     Indication: PRODUCT USED FOR UNKNOWN INDICATION
     Dosage: DOSING DETAILS NOT PROVIDED
     Route: 065
  2. SUBOXONE [Suspect]
     Indication: PRODUCT USED FOR UNKNOWN INDICATION
     Dosage: DOSING DETAILS NOT PROVIDED
     Route: 065

REACTIONS (15)
  - THERAPEUTIC RESPONSE DECREASED [None]
  - MATERNAL EXPOSURE DURING PREGNANCY [None]
  - HYPERHIDROSIS [None]
  - PREGNANCY [None]
  - PAROSMIA [None]
  - DIZZINESS [None]
  - APATHY [None]
  - MIGRAINE [None]
  - PHOTOPSIA [None]
  - ASTHENIA [None]
  - MATERNAL USE OF ILLICIT DRUGS [None]
  - HALLUCINATION [None]
  - DYSGEUSIA [None]
  - EAR DISORDER [None]
  - COLD SWEAT [None]
